FAERS Safety Report 11060704 (Version 1)
Quarter: 2015Q2

REPORT INFORMATION
  Report Type: Report from Study
  Country: US (occurrence: US)
  Receive Date: 20150423
  Receipt Date: 20150423
  Transmission Date: 20150821
  Serious: Yes (Hospitalization)
  Sender: FDA-Public Use
  Company Number: US-MERCK-1504USA018697

PATIENT
  Age: 80 Year
  Sex: Male
  Weight: 78 kg

DRUGS (4)
  1. AZACITIDINE. [Suspect]
     Active Substance: AZACITIDINE
     Dosage: 75 MG/M2 SQ OR IV ON DAYS 1-7 OR 75 MG/M2 SQ OR IV ON DAYS 1-5 AND DAYS 8-9
     Route: 058
     Dates: start: 20150406, end: 20150409
  2. VORINOSTAT [Suspect]
     Active Substance: VORINOSTAT
     Indication: CHRONIC MYELOMONOCYTIC LEUKAEMIA
     Dosage: 300 MG PO BID ON DAYS 3-9
     Route: 048
     Dates: start: 20130521, end: 20150405
  3. VORINOSTAT [Suspect]
     Active Substance: VORINOSTAT
     Dosage: 300 MG PO BID ON DAYS 3-9
     Route: 048
     Dates: start: 20150406, end: 20150409
  4. AZACITIDINE. [Suspect]
     Active Substance: AZACITIDINE
     Indication: CHRONIC MYELOMONOCYTIC LEUKAEMIA
     Dosage: 75 MG/M2 SQ OR IV ON DAYS 1-7 OR 75 MG/M2 SQ OR IV ON DAYS 1-5 AND DAYS 8-9
     Route: 058
     Dates: start: 20130521, end: 20150405

REACTIONS (2)
  - Hyponatraemia [Not Recovered/Not Resolved]
  - Colitis [Not Recovered/Not Resolved]

NARRATIVE: CASE EVENT DATE: 20150409
